FAERS Safety Report 21186150 (Version 1)
Quarter: 2022Q3

REPORT INFORMATION
  Report Type: Spontaneous
  Country: US (occurrence: US)
  Receive Date: 20220808
  Receipt Date: 20220808
  Transmission Date: 20221027
  Serious: Yes (Hospitalization, Other)
  Sender: FDA-Public Use
  Company Number: US-PFIZER INC-PV202200036637

PATIENT
  Sex: Male
  Weight: 15.1 kg

DRUGS (3)
  1. CAMPTOSAR [Suspect]
     Active Substance: IRINOTECAN HYDROCHLORIDE
     Indication: Product used for unknown indication
     Dosage: UNK
  2. DINUTUXIMAB [Suspect]
     Active Substance: DINUTUXIMAB
     Indication: Product used for unknown indication
     Dosage: UNK, CYCLIC
     Route: 042
  3. LEUKINE [Concomitant]
     Active Substance: SARGRAMOSTIM
     Dosage: UNK

REACTIONS (7)
  - Hypokalaemia [Unknown]
  - Gene mutation identification test positive [Unknown]
  - Diarrhoea [Unknown]
  - COVID-19 [Unknown]
  - Hypertension [Unknown]
  - Dehydration [Unknown]
  - Treatment delayed [Unknown]

NARRATIVE: CASE EVENT DATE: 20220118
